FAERS Safety Report 6524463-0 (Version None)
Quarter: 2010Q1

REPORT INFORMATION
  Report Type: 
  Country: None (occurrence: None)
  Receive Date: 20100104
  Receipt Date: 20091204
  Transmission Date: 20100710
  Serious: No
  Sender: FDA-Public Use
  Company Number: US-BAYER-200917569BCC

PATIENT
  Age: 63 Year
  Sex: Female
  Weight: 64 kg

DRUGS (14)
  1. ALEVE [Suspect]
     Indication: PAIN
     Route: 048
     Dates: start: 19990101
  2. ALEVE (CAPLET) [Suspect]
     Indication: PAIN
     Route: 048
     Dates: start: 19990101
  3. LISINOPRIL [Concomitant]
  4. ATENOLOL [Concomitant]
  5. ACYCLOVIR [Concomitant]
  6. ASPIRIN [Concomitant]
  7. L-CARNITINE [Concomitant]
  8. OMEGA 369 [Concomitant]
  9. GARLIC [Concomitant]
  10. CENTRUM SILVER [Concomitant]
  11. CALTRATE CALCIUM D [Concomitant]
  12. VITAMIN C [Concomitant]
  13. VITAMIN E [Concomitant]
  14. ALPHA-LIPOIC ACID [Concomitant]

REACTIONS (1)
  - OEDEMA PERIPHERAL [None]
